FAERS Safety Report 23352090 (Version 5)
Quarter: 2025Q1

REPORT INFORMATION
  Report Type: Spontaneous
  Country: FR (occurrence: FR)
  Receive Date: 20231229
  Receipt Date: 20250312
  Transmission Date: 20250409
  Serious: Yes (Other)
  Sender: MYLAN
  Company Number: FR-ROCHE-3434940

PATIENT
  Age: 7 Year
  Sex: Female
  Weight: 24.1 kg

DRUGS (34)
  1. METHOTREXATE [Suspect]
     Active Substance: METHOTREXATE
     Indication: B-cell lymphoma
  2. HYDROCORTISONE [Suspect]
     Active Substance: HYDROCORTISONE
     Indication: B-cell lymphoma
     Dosage: 12 MILLIGRAM, QD
     Dates: start: 20230811
  3. GLOFITAMAB [Suspect]
     Active Substance: GLOFITAMAB
     Indication: B-cell lymphoma
  4. GLOFITAMAB [Suspect]
     Active Substance: GLOFITAMAB
  5. OBINUTUZUMAB [Suspect]
     Active Substance: OBINUTUZUMAB
     Indication: B-cell lymphoma
  6. OBINUTUZUMAB [Suspect]
     Active Substance: OBINUTUZUMAB
  7. ETOPOSIDE [Suspect]
     Active Substance: ETOPOSIDE
     Indication: B-cell lymphoma
  8. MESNA [Suspect]
     Active Substance: MESNA
     Indication: B-cell lymphoma
  9. MESNA [Suspect]
     Active Substance: MESNA
  10. CARBOPLATIN [Suspect]
     Active Substance: CARBOPLATIN
     Indication: B-cell lymphoma
  11. CYTARABINE [Suspect]
     Active Substance: CYTARABINE
     Indication: B-cell lymphoma
  12. LENOGRASTIM [Suspect]
     Active Substance: LENOGRASTIM
     Indication: B-cell lymphoma
  13. LENOGRASTIM [Suspect]
     Active Substance: LENOGRASTIM
  14. IFOSFAMIDE [Suspect]
     Active Substance: IFOSFAMIDE
     Indication: B-cell lymphoma
  15. HYDROCORTISONE [Concomitant]
     Active Substance: HYDROCORTISONE
     Dosage: 5 MILLIGRAM, QD
  16. HYDROCORTISONE [Suspect]
     Active Substance: HYDROCORTISONE
     Indication: B-cell lymphoma
     Dosage: 7.5 MILLIGRAM, QD
     Dates: start: 20230405
  17. BACTRIM [Concomitant]
     Active Substance: SULFAMETHOXAZOLE\TRIMETHOPRIM
     Indication: Prophylaxis
     Dosage: 600 MILLIGRAM, QD
     Dates: start: 202302, end: 20230907
  18. BACTRIM [Concomitant]
     Active Substance: SULFAMETHOXAZOLE\TRIMETHOPRIM
     Dosage: UNK UNK, Q3W
     Dates: start: 20230907
  19. OXYGEN [Concomitant]
     Active Substance: OXYGEN
  20. DOLIPRANE [Concomitant]
     Active Substance: ACETAMINOPHEN
     Indication: Pain
     Dosage: 350 MILLIGRAM, QD
     Dates: start: 20230828, end: 20230828
  21. DOLIPRANE [Concomitant]
     Active Substance: ACETAMINOPHEN
     Dates: start: 20230809, end: 20230810
  22. ATARAX [Concomitant]
     Active Substance: HYDROXYZINE HYDROCHLORIDE
     Indication: Anxiety
     Dosage: 20 MILLIGRAM, QD
     Dates: start: 20230812, end: 20230818
  23. INTRATECT [Concomitant]
     Active Substance: HUMAN IMMUNOGLOBULIN G
     Dosage: 10 GRAM, QD
     Dates: start: 20230822, end: 20230822
  24. DEXAMETHASONE [Concomitant]
     Active Substance: DEXAMETHASONE
     Dosage: 12 MILLIGRAM, QD
     Dates: start: 20230809, end: 20230809
  25. DEXAMETHASONE [Concomitant]
     Active Substance: DEXAMETHASONE
     Dosage: 12 MILLIGRAM, QD
     Dates: start: 20230818, end: 20230818
  26. DEXAMETHASONE [Concomitant]
     Active Substance: DEXAMETHASONE
     Dosage: 10 MILLIGRAM, QD
     Dates: start: 20230828, end: 20230828
  27. POLARAMINE [Concomitant]
     Active Substance: DEXCHLORPHENIRAMINE MALEATE
     Dosage: 5 MILLIGRAM, QD
     Dates: start: 20230809, end: 20230810
  28. POLARAMINE [Concomitant]
     Active Substance: DEXCHLORPHENIRAMINE MALEATE
     Dosage: 5 MILLIGRAM, QD
     Dates: start: 20230818, end: 20230818
  29. POLARAMINE [Concomitant]
     Active Substance: DEXCHLORPHENIRAMINE MALEATE
     Dosage: 5 MILLIGRAM, QD
     Dates: start: 20230828, end: 20230828
  30. RASBURICASE [Concomitant]
     Active Substance: RASBURICASE
     Dosage: 4.7 MILLIGRAM, QD
     Dates: start: 20230809, end: 20230810
  31. AMOXICILLIN [Concomitant]
     Active Substance: AMOXICILLIN
     Dosage: 750 MILLIGRAM, Q8H
     Dates: start: 20230822, end: 20230828
  32. HYDROXYZINE [Concomitant]
     Active Substance: HYDROXYZINE HYDROCHLORIDE
  33. ALOXI [Concomitant]
     Active Substance: PALONOSETRON HYDROCHLORIDE
     Indication: Vomiting
     Dosage: 260 MICROGRAM, QD
     Dates: start: 20230815
  34. HALDOL [Concomitant]
     Active Substance: HALOPERIDOL
     Indication: Vomiting
     Dosage: 10 MILLIGRAM, QD
     Dates: start: 20230811, end: 20230811

REACTIONS (1)
  - Cytokine release syndrome [Recovered/Resolved]

NARRATIVE: CASE EVENT DATE: 20230829
